FAERS Safety Report 6462087-4 (Version None)
Quarter: 2009Q4

REPORT INFORMATION
  Report Type: 
  Country: None (occurrence: None)
  Receive Date: 20091123
  Receipt Date: 20091118
  Transmission Date: 20100525
  Serious: Yes (Death, Hospitalization)
  Sender: FDA-Public Use
  Company Number: 2009SP027351

PATIENT
  Age: 68 Year
  Sex: Female

DRUGS (6)
  1. TEMODAR [Suspect]
     Indication: MALIGNANT MELANOMA
     Dosage: 400 MG; QD; PO
     Route: 048
     Dates: start: 20090813, end: 20090817
  2. METOPROLOL [Concomitant]
  3. SYNTHROID [Concomitant]
  4. ZETIA [Concomitant]
  5. ASPIRIN [Concomitant]
  6. COUMADIN [Concomitant]

REACTIONS (4)
  - APLASTIC ANAEMIA [None]
  - METASTATIC MALIGNANT MELANOMA [None]
  - MUCOSAL INFLAMMATION [None]
  - PYREXIA [None]
